FAERS Safety Report 6258103-5 (Version None)
Quarter: 2009Q3

REPORT INFORMATION
  Report Type: 
  Country: None (occurrence: None)
  Receive Date: 20090707
  Receipt Date: 20090623
  Transmission Date: 20100115
  Serious: Yes (Other)
  Sender: FDA-Public Use
  Company Number: PHHY2009DE21134

PATIENT
  Sex: Female

DRUGS (7)
  1. FEMARA [Suspect]
     Indication: BREAST CANCER RECURRENT
     Dosage: 1 DAILY
     Route: 048
     Dates: start: 20071214, end: 20090428
  2. DIOVAN HCT [Concomitant]
     Dosage: 1 DAILY
     Route: 048
  3. ALLOPURINOL [Concomitant]
     Dosage: 1 DAILY
     Route: 048
  4. GLIMEPIRIDE [Concomitant]
     Dosage: 1 DAILY
     Route: 048
  5. METFORMIN HCL [Concomitant]
     Dosage: 1 DAILY
     Route: 048
  6. LEVOTHYROXINE SODIUM [Concomitant]
     Dosage: 1 DAILY
     Route: 048
  7. VOLTAREN [Concomitant]
     Dosage: 2 DAILY
     Route: 048

REACTIONS (19)
  - ALOPECIA [None]
  - ARTHRALGIA [None]
  - ASTHENIA [None]
  - BLOOD GLUCOSE FLUCTUATION [None]
  - BONE PAIN [None]
  - DIABETES MELLITUS [None]
  - FATIGUE [None]
  - HOT FLUSH [None]
  - HYPOAESTHESIA [None]
  - INTERVERTEBRAL DISC PROTRUSION [None]
  - JOINT STIFFNESS [None]
  - MICTURITION URGENCY [None]
  - MUSCLE SPASMS [None]
  - MUSCULOSKELETAL PAIN [None]
  - OEDEMA PERIPHERAL [None]
  - SLEEP DISORDER [None]
  - VISION BLURRED [None]
  - VISUAL IMPAIRMENT [None]
  - VULVOVAGINAL BURNING SENSATION [None]
